FAERS Safety Report 11244188 (Version 1)
Quarter: 2015Q3

REPORT INFORMATION
  Report Type: Spontaneous
  Country: US (occurrence: None)
  Receive Date: 20150706
  Receipt Date: 20150706
  Transmission Date: 20151125
  Serious: No
  Sender: FDA-Public Use
  Company Number: None

PATIENT

DRUGS (1)
  1. HEPARIN SOD. SOLUTION 25,000 UNITS/250 ML HEPARIN SODIUM [Suspect]
     Active Substance: HEPARIN SODIUM
     Dosage: 25,000 UNITS IN 250 ML IV BAG 250 ML
     Route: 042

REACTIONS (1)
  - Product barcode issue [None]
